FAERS Safety Report 9900641 (Version 3)
Quarter: 2014Q2

REPORT INFORMATION
  Report Type: Report from Study
  Country: FR (occurrence: FR)
  Receive Date: 20140217
  Receipt Date: 20140603
  Transmission Date: 20141212
  Serious: Yes (Hospitalization)
  Sender: FDA-Public Use
  Company Number: FR-ROCHE-1311481

PATIENT
  Age: 36 Year
  Sex: Female

DRUGS (8)
  1. PEG-INTERFERON ALFA 2A [Suspect]
     Indication: HEPATITIS C
     Route: 058
     Dates: start: 20121106, end: 20130618
  2. RIBAVIRIN [Suspect]
     Indication: HEPATITIS C
     Route: 048
     Dates: start: 20121106, end: 20130618
  3. TELAPREVIR [Suspect]
     Indication: HEPATITIS C
     Route: 048
     Dates: start: 20121106, end: 20130122
  4. SERESTA [Concomitant]
     Route: 048
  5. SEROPLEX [Concomitant]
     Indication: DEPRESSION
     Route: 048
  6. LOXAPAC [Concomitant]
     Route: 048
  7. OLANZAPINE [Concomitant]
     Indication: BIPOLAR DISORDER
     Route: 048
  8. XEROQUEL [Concomitant]
     Route: 048

REACTIONS (1)
  - Pyelonephritis [Recovered/Resolved]
